FAERS Safety Report 13575758 (Version 1)
Quarter: 2017Q2

REPORT INFORMATION
  Report Type: Spontaneous
  Country: US (occurrence: US)
  Receive Date: 20170523
  Receipt Date: 20170523
  Transmission Date: 20170830
  Serious: Yes (Hospitalization)
  Sender: FDA-Public Use
  Company Number: None

PATIENT
  Age: 38 Year
  Sex: Female
  Weight: 87.4 kg

DRUGS (6)
  1. OXYCODONE [Concomitant]
     Active Substance: OXYCODONE
  2. ESTRADIOL (VIVELLE-DOT) [Concomitant]
  3. SYNTHROID [Concomitant]
     Active Substance: LEVOTHYROXINE SODIUM
  4. PROGESTERONE IN SESAME OIL 50 MG/ML [Suspect]
     Active Substance: PROGESTERONE
     Indication: IN VITRO FERTILISATION
     Route: 030
     Dates: start: 20170515, end: 20170521
  5. ACETAMINOPHEN. [Concomitant]
     Active Substance: ACETAMINOPHEN
  6. PRENATAL VITAMIN [Concomitant]
     Active Substance: VITAMINS

REACTIONS (6)
  - Infective myositis [None]
  - Hypotension [None]
  - Pyrexia [None]
  - Pain in extremity [None]
  - Tachycardia [None]
  - Leukocytosis [None]

NARRATIVE: CASE EVENT DATE: 20170521
